FAERS Safety Report 21104664 (Version 1)
Quarter: 2022Q3

REPORT INFORMATION
  Report Type: Spontaneous
  Country: US (occurrence: None)
  Receive Date: 20220719
  Receipt Date: 20220719
  Transmission Date: 20221026
  Serious: Yes (Hospitalization)
  Sender: FDA-Public Use
  Company Number: None

PATIENT
  Age: 17 Year
  Sex: Female
  Weight: 86.6 kg

DRUGS (1)
  1. RITUXIMAB [Suspect]
     Active Substance: RITUXIMAB
     Dosage: OTHER FREQUENCY : ONCE;?
     Route: 041
     Dates: start: 20211221, end: 20211221

REACTIONS (1)
  - Serum sickness [None]

NARRATIVE: CASE EVENT DATE: 20211221
